FAERS Safety Report 10074163 (Version 1)
Quarter: 2014Q2

REPORT INFORMATION
  Report Type: Spontaneous
  Country: US (occurrence: US)
  Receive Date: 20140411
  Receipt Date: 20140411
  Transmission Date: 20141212
  Serious: No
  Sender: FDA-Public Use
  Company Number: US-SA-2014SA030324

PATIENT
  Age: 67 Year
  Sex: Female

DRUGS (1)
  1. ALLEGRA D [Suspect]
     Route: 048

REACTIONS (3)
  - Dark circles under eyes [Not Recovered/Not Resolved]
  - Dry mouth [Not Recovered/Not Resolved]
  - Insomnia [Unknown]
